FAERS Safety Report 14591883 (Version 2)
Quarter: 2018Q1

REPORT INFORMATION
  Report Type: Report from Study
  Country: ES (occurrence: ES)
  Receive Date: 20180302
  Receipt Date: 20180308
  Transmission Date: 20180509
  Serious: Yes (Hospitalization)
  Sender: FDA-Public Use
  Company Number: ES-ASTELLAS-2018US010606

PATIENT
  Age: 81 Year
  Sex: Female

DRUGS (3)
  1. TAMOXIFENO FUNK 20 MG COMPRIMIDOS [Interacting]
     Active Substance: TAMOXIFEN CITRATE
     Indication: BREAST NEOPLASM
     Route: 048
     Dates: start: 20160728, end: 20170922
  2. OMEPRAZOL                          /00661201/ [Concomitant]
     Active Substance: OMEPRAZOLE
     Indication: PROPHYLAXIS AGAINST GASTROINTESTINAL ULCER
     Route: 048
  3. MIRABEGRON [Suspect]
     Active Substance: MIRABEGRON
     Indication: PRODUCT USED FOR UNKNOWN INDICATION
     Route: 048
     Dates: start: 20170828, end: 20170921

REACTIONS (2)
  - Deep vein thrombosis [Recovering/Resolving]
  - Drug interaction [Unknown]

NARRATIVE: CASE EVENT DATE: 20170919
